FAERS Safety Report 22603944 (Version 1)
Quarter: 2023Q2

REPORT INFORMATION
  Report Type: Report from Study
  Country: MA (occurrence: MA)
  Receive Date: 20230615
  Receipt Date: 20230615
  Transmission Date: 20230721
  Serious: Yes (Other)
  Sender: FDA-Public Use
  Company Number: MA-002147023-NVSC2023MA133046

PATIENT
  Sex: Female

DRUGS (1)
  1. KISQALI [Suspect]
     Active Substance: RIBOCICLIB
     Indication: Breast cancer
     Dosage: 200 MG, TID
     Route: 048
     Dates: start: 20230527

REACTIONS (7)
  - Diplegia [Unknown]
  - Metastases to spine [Unknown]
  - Breast cancer [Unknown]
  - Malignant neoplasm progression [Unknown]
  - Musculoskeletal stiffness [Unknown]
  - Pain [Unknown]
  - Inappropriate schedule of product administration [Unknown]
